FAERS Safety Report 13980701 (Version 1)
Quarter: 2017Q3

REPORT INFORMATION
  Report Type: Spontaneous
  Country: IT (occurrence: IT)
  Receive Date: 20170918
  Receipt Date: 20170918
  Transmission Date: 20171128
  Serious: Yes (Life-Threatening, Hospitalization)
  Sender: FDA-Public Use
  Company Number: IT-ACCORD-058501

PATIENT
  Age: 69 Year
  Sex: Female

DRUGS (9)
  1. OXALIPLATIN. [Concomitant]
     Active Substance: OXALIPLATIN
     Indication: METASTASES TO LIVER
     Dosage: ON DAY 1
     Dates: start: 201602
  2. FOLINIC ACID [Concomitant]
     Active Substance: LEUCOVORIN
     Indication: METASTASES TO LIVER
     Dates: start: 201602
  3. FLUOROURACIL. [Suspect]
     Active Substance: FLUOROURACIL
     Indication: METASTASES TO LIVER
     Dosage: 3,000 MG/M 2 AS A 46-H INFUSION STARTING ON DAY 1
     Dates: start: 201602
  4. OXALIPLATIN. [Concomitant]
     Active Substance: OXALIPLATIN
     Indication: METASTASES TO LIVER
     Dosage: 75% REDUCED DOSE
  5. OXALIPLATIN. [Concomitant]
     Active Substance: OXALIPLATIN
     Indication: METASTASES TO PERITONEUM
     Dosage: ON DAY 1
     Dates: start: 201602
  6. OXALIPLATIN. [Concomitant]
     Active Substance: OXALIPLATIN
     Indication: METASTASES TO PERITONEUM
     Dosage: 75% REDUCED DOSE
  7. BEVACIZUMAB. [Concomitant]
     Active Substance: BEVACIZUMAB
     Indication: RENAL FAILURE
     Dosage: ON DAY 1; EVERY 2 WEEKS
  8. FLUOROURACIL. [Suspect]
     Active Substance: FLUOROURACIL
     Indication: METASTASES TO PERITONEUM
     Dosage: 3000 MG/M^2 AS A 46-H INFUSION STARTING ON DAY 1
     Dates: start: 201602
  9. FOLINIC ACID [Concomitant]
     Active Substance: LEUCOVORIN
     Indication: METASTASES TO PERITONEUM
     Dates: start: 201602

REACTIONS (4)
  - Off label use [Unknown]
  - Diarrhoea [Unknown]
  - Acute kidney injury [Unknown]
  - Stomatitis [Unknown]

NARRATIVE: CASE EVENT DATE: 201604
